FAERS Safety Report 8719576 (Version 2)
Quarter: 2012Q4

REPORT INFORMATION
  Report Type: Report from Study
  Country: US (occurrence: US)
  Receive Date: 20120813
  Receipt Date: 20120924
  Transmission Date: 20130627
  Serious: Yes (Other)
  Sender: FDA-Public Use
  Company Number: US-JNJFOC-20120802932

PATIENT
  Age: 54 None
  Sex: Female
  Weight: 68.04 kg

DRUGS (20)
  1. REMICADE [Suspect]
     Indication: OSTEOGENESIS IMPERFECTA
     Route: 042
     Dates: start: 201207
  2. REMICADE [Suspect]
     Indication: OSTEOGENESIS IMPERFECTA
     Route: 042
     Dates: start: 201205
  3. REMICADE [Suspect]
     Indication: OSTEOGENESIS IMPERFECTA
     Route: 042
     Dates: start: 201204
  4. REMICADE [Suspect]
     Indication: OSTEOARTHRITIS
     Route: 042
     Dates: start: 201207
  5. REMICADE [Suspect]
     Indication: OSTEOARTHRITIS
     Route: 042
     Dates: start: 201204
  6. REMICADE [Suspect]
     Indication: OSTEOARTHRITIS
     Route: 042
     Dates: start: 201205
  7. REMICADE [Suspect]
     Indication: RHEUMATOID ARTHRITIS
     Route: 042
     Dates: start: 201207
  8. REMICADE [Suspect]
     Indication: RHEUMATOID ARTHRITIS
     Route: 042
     Dates: start: 201204
  9. REMICADE [Suspect]
     Indication: RHEUMATOID ARTHRITIS
     Route: 042
     Dates: start: 201205
  10. UNSPECIFIED INGREDIENT [Suspect]
     Indication: HYPERSENSITIVITY
     Route: 065
     Dates: start: 201205, end: 201205
  11. LEXAPRO [Concomitant]
     Indication: MANIA
     Route: 048
     Dates: start: 1992
  12. LEXAPRO [Concomitant]
     Indication: BIPOLAR DISORDER
     Route: 048
     Dates: start: 1992
  13. LEXAPRO [Concomitant]
     Indication: DEPRESSION
     Route: 048
     Dates: start: 1992
  14. TRAZODONE [Concomitant]
     Indication: ANTIDEPRESSANT THERAPY
     Route: 048
     Dates: start: 1992
  15. TRAZODONE [Concomitant]
     Indication: SLEEP DISORDER
     Route: 048
     Dates: start: 1992
  16. SYNTHROID [Concomitant]
     Indication: THYROID DISORDER
     Dosage: 112 (units unspecified)
     Route: 048
  17. SYNTHROID [Concomitant]
     Indication: THYROID DISORDER
     Route: 048
     Dates: start: 1992
  18. PROTONIX [Concomitant]
     Indication: GASTRIC DISORDER
     Route: 048
     Dates: start: 2012
  19. UNKNOWN MEDICATION [Concomitant]
     Indication: BLOOD CHOLESTEROL
     Route: 048
  20. TIOTROPIUM BROMIDE [Concomitant]
     Indication: CHRONIC OBSTRUCTIVE PULMONARY DISEASE
     Route: 065

REACTIONS (18)
  - Staphylococcal infection [Recovered/Resolved]
  - Chronic obstructive pulmonary disease [Not Recovered/Not Resolved]
  - Blood cholesterol increased [Not Recovered/Not Resolved]
  - Infusion related reaction [Recovered/Resolved]
  - Hypersensitivity [Recovered/Resolved]
  - Spinal pain [Recovered/Resolved]
  - Disorientation [Recovered/Resolved]
  - Psychomotor hyperactivity [Recovered/Resolved]
  - Respiratory arrest [Recovered/Resolved]
  - Speech disorder [Recovered/Resolved]
  - Delirium [Recovered/Resolved]
  - Somnolence [Recovered/Resolved]
  - Osteogenesis imperfecta [Not Recovered/Not Resolved]
  - Pain [Recovered/Resolved]
  - Tremor [Recovered/Resolved]
  - Headache [Recovered/Resolved]
  - Nervousness [Not Recovered/Not Resolved]
  - Insomnia [Recovered/Resolved]
